FAERS Safety Report 10093994 (Version 1)
Quarter: 2014Q2

REPORT INFORMATION
  Report Type: Spontaneous
  Country: FI (occurrence: FI)
  Receive Date: 20140422
  Receipt Date: 20140422
  Transmission Date: 20141212
  Serious: Yes (Hospitalization)
  Sender: FDA-Public Use
  Company Number: FI-ROCHE-1384044

PATIENT
  Age: 68 Year
  Sex: Female

DRUGS (4)
  1. BONVIVA [Suspect]
     Indication: OSTEOPOROSIS
     Route: 048
     Dates: start: 200804, end: 201212
  2. PROLIA [Suspect]
     Indication: OSTEOPOROSIS
     Route: 058
     Dates: start: 201212, end: 201312
  3. OPTINATE SEPTIMUM [Suspect]
     Indication: OSTEOPOROSIS
     Route: 048
     Dates: start: 1995, end: 2008
  4. ESOMEPRAZOL [Concomitant]
     Route: 048

REACTIONS (3)
  - Atypical femur fracture [Not Recovered/Not Resolved]
  - Bone swelling [Not Recovered/Not Resolved]
  - Bone disorder [Not Recovered/Not Resolved]
